FAERS Safety Report 19955930 (Version 2)
Quarter: 2022Q2

REPORT INFORMATION
  Report Type: Spontaneous
  Country: BE (occurrence: BE)
  Receive Date: 20211014
  Receipt Date: 20220412
  Transmission Date: 20220721
  Serious: Yes (Death, Hospitalization, Other)
  Sender: FDA-Public Use
  Company Number: BE-PFIZER INC-2021720656

PATIENT
  Age: 41 Year
  Sex: Male
  Weight: 53 kg

DRUGS (5)
  1. VORICONAZOLE [Suspect]
     Active Substance: VORICONAZOLE
     Indication: Fungal infection
     Dosage: UNK
     Dates: start: 202106
  2. VORICONAZOLE [Suspect]
     Active Substance: VORICONAZOLE
     Indication: Empyema
     Dosage: 200 MILLIGRAM, QD (100 MG, 2X/DAY)
     Route: 048
     Dates: start: 20210603
  3. RUXOLITINIB [Concomitant]
     Active Substance: RUXOLITINIB
     Indication: Immunosuppressant drug therapy
     Dosage: UNK
  4. CASPOFUNGIN [Concomitant]
     Active Substance: CASPOFUNGIN
     Indication: Fungal infection
     Dosage: 100 MILLIGRAM, QD (100 MG, 1X/DAY)
     Dates: start: 20210603
  5. CASPOFUNGIN [Concomitant]
     Active Substance: CASPOFUNGIN
     Indication: Empyema

REACTIONS (3)
  - Cerebral artery embolism [Fatal]
  - Drug ineffective for unapproved indication [Fatal]
  - Off label use [Fatal]

NARRATIVE: CASE EVENT DATE: 20210601
